FAERS Safety Report 9256149 (Version 1)
Quarter: 2013Q2

REPORT INFORMATION
  Report Type: Spontaneous
  Country: US (occurrence: US)
  Receive Date: 20130425
  Receipt Date: 20130425
  Transmission Date: 20140414
  Serious: No
  Sender: FDA-Public Use
  Company Number: US-AMGEN-USASP2012034685

PATIENT
  Age: 75 Year
  Sex: Female

DRUGS (10)
  1. NEULASTA [Suspect]
     Indication: OVARIAN CANCER
     Dosage: UNK
     Dates: start: 201202
  2. THYROID THERAPY [Concomitant]
     Dosage: UNK
  3. BETA BLOCKING AGENTS [Concomitant]
     Dosage: UNK
  4. VITAMIN B 12 [Concomitant]
     Dosage: UNK
  5. TAXOL [Concomitant]
     Indication: OVARIAN CANCER
     Dosage: UNK
  6. CARBOPLATIN [Concomitant]
     Indication: OVARIAN CANCER
     Dosage: UNK
  7. CORTICOSTEROIDS ACTING LOCALLY [Concomitant]
     Dosage: UNK
  8. LEXAPRO [Concomitant]
     Dosage: UNK
  9. BENADRYL [Concomitant]
     Dosage: UNK
  10. LYRICA [Concomitant]
     Dosage: UNK

REACTIONS (4)
  - Pain in extremity [Unknown]
  - Back pain [Unknown]
  - White blood cell count decreased [Unknown]
  - Bone pain [Unknown]
